FAERS Safety Report 8088669-4 (Version None)
Quarter: 2012Q1

REPORT INFORMATION
  Report Type: 
  Country: None (occurrence: None)
  Receive Date: 20120128
  Receipt Date: 20110412
  Transmission Date: 20120608
  Serious: No
  Sender: FDA-Public Use
  Company Number: US-ABBOTT-11P-163-0718638-00

PATIENT
  Sex: Female

DRUGS (1)
  1. HUMIRA [Suspect]
     Indication: RHEUMATOID ARTHRITIS
     Route: 058
     Dates: start: 20110201, end: 20110301

REACTIONS (7)
  - BURNING SENSATION [None]
  - DYSPHAGIA [None]
  - BODY TEMPERATURE INCREASED [None]
  - ASTHENIA [None]
  - DYSURIA [None]
  - DYSPNOEA [None]
  - SOMNOLENCE [None]
